FAERS Safety Report 4437109-2 (Version None)
Quarter: 2004Q3

REPORT INFORMATION
  Report Type: 
  Country: None (occurrence: None)
  Receive Date: 20040830
  Receipt Date: 20040224
  Transmission Date: 20050211
  Serious: Yes (Death, Other)
  Sender: FDA-Public Use
  Company Number: US-BRISTOL-MYERS SQUIBB COMPANY-12515037

PATIENT

DRUGS (1)
  1. NYSTATIN [Suspect]
     Route: 042

REACTIONS (2)
  - DEATH [None]
  - MEDICATION ERROR [None]
